FAERS Safety Report 6917321-0 (Version None)
Quarter: 2010Q3

REPORT INFORMATION
  Report Type: 
  Country: None (occurrence: None)
  Receive Date: 20100805
  Receipt Date: 20100720
  Transmission Date: 20110219
  Serious: Yes (Death, Hospitalization)
  Sender: FDA-Public Use
  Company Number: WAES 0808AUS00320

PATIENT
  Age: 85 Year
  Sex: Male

DRUGS (3)
  1. CAP VORINOSTAT [Suspect]
     Indication: MYCOSIS FUNGOIDES
     Dosage: 400 MG/DAILY PO; 300 MG/DAILY PO
     Route: 048
     Dates: start: 20080819, end: 20080915
  2. CAP VORINOSTAT [Suspect]
     Indication: MYCOSIS FUNGOIDES
     Dosage: 400 MG/DAILY PO; 300 MG/DAILY PO
     Route: 048
     Dates: start: 20081001, end: 20081020
  3. CAP VORINOSTAT [Suspect]
     Indication: MYCOSIS FUNGOIDES
     Dosage: 400 MG/DAILY PO; 300 MG/DAILY PO
     Route: 048
     Dates: start: 20081110, end: 20081228

REACTIONS (13)
  - ACQUIRED DIAPHRAGMATIC EVENTRATION [None]
  - ADVERSE DRUG REACTION [None]
  - CACHEXIA [None]
  - CARDIOPULMONARY FAILURE [None]
  - CELLULITIS [None]
  - CONSTIPATION [None]
  - DYSPHAGIA [None]
  - INFECTION [None]
  - LUNG CONSOLIDATION [None]
  - MALNUTRITION [None]
  - NAUSEA [None]
  - PNEUMONIA [None]
  - SEPSIS [None]
